FAERS Safety Report 6691291-5 (Version None)
Quarter: 2010Q2

REPORT INFORMATION
  Report Type: 
  Country: None (occurrence: None)
  Receive Date: 20100416
  Receipt Date: 20100405
  Transmission Date: 20101027
  Serious: No
  Sender: FDA-Public Use
  Company Number: 009416

PATIENT
  Age: 77 Year
  Sex: Female

DRUGS (1)
  1. CILOSTAZOL [Suspect]
     Dosage: ORAL
     Route: 048

REACTIONS (5)
  - ANAEMIA [None]
  - HAEMATOMA [None]
  - HAEMORRHAGIC DIATHESIS [None]
  - INTESTINAL MASS [None]
  - SMALL INTESTINAL OBSTRUCTION [None]
